FAERS Safety Report 8312832-8 (Version None)
Quarter: 2012Q2

REPORT INFORMATION
  Report Type: 
  Country: None (occurrence: None)
  Receive Date: 20120426
  Receipt Date: 20120419
  Transmission Date: 20120825
  Serious: No
  Sender: FDA-Public Use
  Company Number: US-PFIZER INC-2012098511

PATIENT
  Sex: Female

DRUGS (1)
  1. XALATAN [Suspect]
     Indication: EYE DISORDER
     Dosage: UNK
     Route: 047

REACTIONS (2)
  - GROWTH OF EYELASHES [None]
  - EXPIRED DRUG ADMINISTERED [None]
